FAERS Safety Report 12975368 (Version 1)
Quarter: 2016Q4

REPORT INFORMATION
  Report Type: Spontaneous
  Country: TR (occurrence: TR)
  Receive Date: 20161125
  Receipt Date: 20161125
  Transmission Date: 20170207
  Serious: Yes (Death, Life-Threatening, Hospitalization, Other)
  Sender: FDA-Public Use
  Company Number: TR-BRISTOL-MYERS SQUIBB COMPANY-BMS-2016-082289

PATIENT
  Age: 50 Year
  Sex: Female

DRUGS (1)
  1. IPILIMUMAB [Suspect]
     Active Substance: IPILIMUMAB
     Indication: MALIGNANT MELANOMA
     Dosage: UNK
     Route: 065

REACTIONS (5)
  - Hepatic failure [Unknown]
  - Multiple organ dysfunction syndrome [Unknown]
  - Hepatitis [Fatal]
  - Liver function test increased [Not Recovered/Not Resolved]
  - Malignant neoplasm progression [Fatal]
